FAERS Safety Report 20976839 (Version 2)
Quarter: 2022Q4

REPORT INFORMATION
  Report Type: Spontaneous
  Country: CL (occurrence: CL)
  Receive Date: 20220617
  Receipt Date: 20221003
  Transmission Date: 20230113
  Serious: Yes (Other)
  Sender: FDA-Public Use
  Company Number: CL-GLAXOSMITHKLINE-CL2022AMR093422

PATIENT

DRUGS (3)
  1. FLUTICASONE PROPIONATE [Suspect]
     Active Substance: FLUTICASONE PROPIONATE
     Indication: Asthma
     Dosage: 1 PUFF(S),EVERY 12 HOURS
     Route: 055
     Dates: start: 20220613
  2. MOMETASONE FUROATE [Suspect]
     Active Substance: MOMETASONE FUROATE
     Indication: Nasal disorder
     Dosage: 1 PUFF(S),INTO EACH NOSTRIL EVERY 12 HOURS
  3. CETIRIZINE HYDROCHLORIDE [Suspect]
     Active Substance: CETIRIZINE HYDROCHLORIDE
     Indication: Hypersensitivity
     Dosage: UNK,12 DROPS AT NIGHT

REACTIONS (2)
  - Asthmatic crisis [Recovered/Resolved]
  - Breath sounds abnormal [Recovered/Resolved]

NARRATIVE: CASE EVENT DATE: 20220613
